FAERS Safety Report 5076073-2 (Version None)
Quarter: 2006Q3

REPORT INFORMATION
  Report Type: 
  Country: None (occurrence: None)
  Receive Date: 20060804
  Receipt Date: 20060719
  Transmission Date: 20061208
  Serious: Yes (Life-Threatening, Hospitalization)
  Sender: FDA-Public Use
  Company Number: DSA_28506_2006

PATIENT
  Age: 78 Year
  Sex: Female

DRUGS (7)
  1. ENALAPRIL MALEATE [Suspect]
     Indication: HYPERTENSION
     Dosage: 10 MG QD; PO
     Route: 048
     Dates: end: 20060522
  2. SPIRIX [Suspect]
     Indication: OEDEMA
     Dosage: 100 MG Q DAY; PO
     Route: 048
     Dates: start: 20060423, end: 20060522
  3. MADOPAR /00349201/ [Concomitant]
  4. CIPRAMIL /00582602/ [Concomitant]
  5. FLUNIPAM [Concomitant]
  6. REMERON [Concomitant]
  7. SOBRIL [Concomitant]

REACTIONS (3)
  - BLOOD SODIUM INCREASED [None]
  - HYPERKALAEMIA [None]
  - RENAL FAILURE ACUTE [None]
